FAERS Safety Report 23077088 (Version 1)
Quarter: 2023Q4

REPORT INFORMATION
  Report Type: Report from Study
  Country: BE (occurrence: BE)
  Receive Date: 20231018
  Receipt Date: 20231018
  Transmission Date: 20240109
  Serious: Yes (Death)
  Sender: FDA-Public Use
  Company Number: BE-ABBVIE-5454505

PATIENT
  Sex: Female
  Weight: 65 kg

DRUGS (4)
  1. CARBIDOPA\LEVODOPA [Suspect]
     Active Substance: CARBIDOPA\LEVODOPA
     Indication: Parkinson^s disease
     Dosage: MD: 0.2 ML, CD: 4.2 ML/H, ED: 0.6 ML REMAINS AT 16 HOURS
     Route: 050
     Dates: start: 20230329, end: 20230726
  2. CARBIDOPA\LEVODOPA [Suspect]
     Active Substance: CARBIDOPA\LEVODOPA
     Route: 050
     Dates: start: 20211115
  3. CARBIDOPA\LEVODOPA [Suspect]
     Active Substance: CARBIDOPA\LEVODOPA
     Dosage: MD: 1.0 ML, CD: 3.4 ML/H, ED: 1.8 ML REMAINS AT 16 HOURS
     Route: 050
     Dates: start: 20230726
  4. PRAMIPEXOLE [Concomitant]
     Active Substance: PRAMIPEXOLE
     Indication: Product used for unknown indication

REACTIONS (1)
  - Death [Fatal]
